FAERS Safety Report 9736663 (Version 1)
Quarter: 2013Q4

REPORT INFORMATION
  Report Type: Spontaneous
  Country: US (occurrence: US)
  Receive Date: 20131206
  Receipt Date: 20131206
  Transmission Date: 20140711
  Serious: No
  Sender: FDA-Public Use
  Company Number: US-GILEAD-2009-0023216

PATIENT
  Sex: Male
  Weight: 89.36 kg

DRUGS (16)
  1. LETAIRIS [Suspect]
     Indication: PULMONARY ARTERIAL HYPERTENSION
     Route: 048
     Dates: start: 20090701
  2. CRESTOR [Concomitant]
  3. METOPROLOL [Concomitant]
  4. ISOSORBIDE DN [Concomitant]
  5. DIGOXIN [Concomitant]
  6. CATAPRES-TTS [Concomitant]
  7. TEKTURNA [Concomitant]
  8. FUROSEMIDE [Concomitant]
  9. LISINOPRIL [Concomitant]
  10. COUMADIN [Concomitant]
  11. ASPIRIN [Concomitant]
  12. OXYGEN [Concomitant]
  13. LANTUS [Concomitant]
  14. METFORMIN HCL ER [Concomitant]
  15. GLYBURIDE [Concomitant]
  16. PROZAC [Concomitant]

REACTIONS (2)
  - Local swelling [Unknown]
  - Rash [Unknown]
